FAERS Safety Report 7570506-5 (Version None)
Quarter: 2011Q2

REPORT INFORMATION
  Report Type: 
  Country: None (occurrence: None)
  Receive Date: 20110624
  Receipt Date: 20110318
  Transmission Date: 20111010
  Serious: No
  Sender: FDA-Public Use
  Company Number: US-ALLERGAN-1103900US

PATIENT
  Age: 60 Year
  Sex: Female

DRUGS (1)
  1. LATISSE [Suspect]
     Indication: GROWTH OF EYELASHES
     Dosage: 1 GTT, QHS
     Route: 061
     Dates: start: 20110315

REACTIONS (6)
  - HEADACHE [None]
  - INSOMNIA [None]
  - DIZZINESS [None]
  - LYMPHADENOPATHY [None]
  - DYSGEUSIA [None]
  - MUSCLE TIGHTNESS [None]
